FAERS Safety Report 22209719 (Version 1)
Quarter: 2023Q2

REPORT INFORMATION
  Report Type: Report from Study
  Country: US (occurrence: US)
  Receive Date: 20230414
  Receipt Date: 20230414
  Transmission Date: 20230722
  Serious: No
  Sender: FDA-Public Use
  Company Number: US-BIOVITRUM-2023-US-006672

PATIENT
  Age: 51 Year
  Sex: Female

DRUGS (1)
  1. DOPTELET [Suspect]
     Active Substance: AVATROMBOPAG MALEATE
     Indication: Thrombocytopenia
     Route: 048
     Dates: start: 20230303

REACTIONS (4)
  - Fatigue [Unknown]
  - Headache [Unknown]
  - Dizziness [Unknown]
  - Vertigo [Unknown]
